FAERS Safety Report 9788679 (Version 2)
Quarter: 2014Q1

REPORT INFORMATION
  Report Type: Spontaneous
  Country: US (occurrence: US)
  Receive Date: 20131230
  Receipt Date: 20140131
  Transmission Date: 20141002
  Serious: Yes (Disabling)
  Sender: FDA-Public Use
  Company Number: US-009507513-1312USA011859

PATIENT
  Age: 48 Year
  Sex: Female

DRUGS (2)
  1. EMEND [Suspect]
     Dosage: SHE TOOK 40 MG EMEND 1 HOUR AND 45 MINUTES BEFORE AN UNSPECIFIED SURGERY
     Dates: start: 20130805, end: 20130805
  2. EMEND [Suspect]
     Dosage: THE PATIENT TOOK 80MG EMEND 10 MINUTES BEFORE AN UNSPECIFIED SURGERY
     Dates: start: 20131224, end: 20131224

REACTIONS (5)
  - Procedural vomiting [Recovering/Resolving]
  - Procedural nausea [Recovering/Resolving]
  - Drug ineffective [Unknown]
  - Incorrect dose administered [Unknown]
  - Inappropriate schedule of drug administration [Unknown]
